FAERS Safety Report 21408669 (Version 2)
Quarter: 2022Q4

REPORT INFORMATION
  Report Type: Report from Study
  Country: US (occurrence: US)
  Receive Date: 20221004
  Receipt Date: 20221027
  Transmission Date: 20230113
  Serious: No
  Sender: FDA-Public Use
  Company Number: US-ABBVIE-4132792

PATIENT
  Sex: Male

DRUGS (1)
  1. MAVYRET [Suspect]
     Active Substance: GLECAPREVIR\PIBRENTASVIR
     Indication: Chronic hepatitis C
     Dosage: 50-20MG TAKE 5 PACKETS BY MOUTH DAILY FOR 56 DAYS.
     Route: 048
     Dates: start: 20220829

REACTIONS (6)
  - Headache [Unknown]
  - Nausea [Unknown]
  - Vomiting [Unknown]
  - Wrong technique in product usage process [Unknown]
  - Infection [Unknown]
  - Educational problem [Unknown]

NARRATIVE: CASE EVENT DATE: 20220101
